FAERS Safety Report 24444580 (Version 1)
Quarter: 2024Q4

REPORT INFORMATION
  Report Type: Spontaneous
  Country: US (occurrence: None)
  Receive Date: 20241015
  Receipt Date: 20241015
  Transmission Date: 20250115
  Serious: Yes (Hospitalization)
  Sender: Public
  Company Number: None

PATIENT
  Age: 75 Year
  Sex: Male
  Weight: 88 kg

DRUGS (1)
  1. RIVASTIGMINE TRANSDERMAL SYSTEM [Suspect]
     Active Substance: RIVASTIGMINE
     Indication: Dementia
     Dosage: FREQUENCY : DAILY;?
     Route: 061
     Dates: start: 20240319, end: 20240506

REACTIONS (1)
  - Syncope [None]

NARRATIVE: CASE EVENT DATE: 20240425
